FAERS Safety Report 25645308 (Version 1)
Quarter: 2025Q3

REPORT INFORMATION
  Report Type: Spontaneous
  Country: US (occurrence: None)
  Receive Date: 20250804
  Receipt Date: 20250804
  Transmission Date: 20251020
  Serious: No
  Sender: FDA-CTU
  Company Number: None

PATIENT
  Age: 70 Year
  Sex: Male
  Weight: 72 kg

DRUGS (5)
  1. AMOXICILLIN [Suspect]
     Active Substance: AMOXICILLIN
     Indication: Tooth extraction
     Dosage: OTHER QUANTITY : 21 TABLET(S);?FREQUENCY : 3 TIMES A DAY;?
     Route: 048
     Dates: start: 20250714, end: 20250716
  2. GLIPIZIDE [Concomitant]
     Active Substance: GLIPIZIDE
  3. TAMSULOSIN [Concomitant]
     Active Substance: TAMSULOSIN
  4. FLUOXETINE [Concomitant]
     Active Substance: FLUOXETINE HYDROCHLORIDE
  5. METFORMIN [Concomitant]
     Active Substance: METFORMIN HYDROCHLORIDE

REACTIONS (3)
  - Taste disorder [None]
  - Parosmia [None]
  - Paraesthesia [None]

NARRATIVE: CASE EVENT DATE: 20250714
